FAERS Safety Report 26094050 (Version 2)
Quarter: 2025Q4

REPORT INFORMATION
  Report Type: Spontaneous
  Country: US (occurrence: US)
  Receive Date: 20251126
  Receipt Date: 20251205
  Transmission Date: 20260118
  Serious: Yes (Life-Threatening, Hospitalization)
  Sender: GUERBET
  Company Number: US-GUERBET / LLC-US-20250195

PATIENT
  Age: 29 Year
  Sex: Female
  Weight: 97.5 kg

DRUGS (1)
  1. DOTAREM [Suspect]
     Active Substance: GADOTERATE MEGLUMINE
     Indication: Magnetic resonance imaging
     Route: 042
     Dates: start: 20251111, end: 20251111

REACTIONS (5)
  - Throat tightness [Unknown]
  - Dyspnoea [Unknown]
  - Dysphagia [Recovered/Resolved]
  - Dizziness [Recovered/Resolved]
  - Headache [Recovered/Resolved]

NARRATIVE: CASE EVENT DATE: 20251111
